FAERS Safety Report 22539604 (Version 1)
Quarter: 2023Q2

REPORT INFORMATION
  Report Type: Spontaneous
  Country: US (occurrence: US)
  Receive Date: 20230609
  Receipt Date: 20230609
  Transmission Date: 20230721
  Serious: No
  Sender: FDA-Public Use
  Company Number: US-SPECGX-T202200644

PATIENT
  Age: 69 Year
  Sex: Female
  Weight: 76 kg

DRUGS (2)
  1. ACETAMINOPHEN\HYDROCODONE [Suspect]
     Active Substance: ACETAMINOPHEN\HYDROCODONE
     Indication: Analgesic therapy
     Dosage: 1 DOSAGE FORM, Q6H
     Route: 048
     Dates: start: 20220416
  2. ACETAMINOPHEN\HYDROCODONE [Suspect]
     Active Substance: ACETAMINOPHEN\HYDROCODONE
     Dosage: 0.5 DOSAGE FORM, Q6H
     Route: 048
     Dates: start: 20220418

REACTIONS (10)
  - Cough [Unknown]
  - Malaise [Unknown]
  - Abdominal discomfort [Unknown]
  - Asthenia [Unknown]
  - Insomnia [Unknown]
  - Dyspnoea [Unknown]
  - Vomiting [Unknown]
  - Agitation [Unknown]
  - Wrong technique in product usage process [Unknown]
  - Drug ineffective [Unknown]

NARRATIVE: CASE EVENT DATE: 20220418
